FAERS Safety Report 8171944-2 (Version None)
Quarter: 2012Q1

REPORT INFORMATION
  Report Type: 
  Country: None (occurrence: None)
  Receive Date: 20120228
  Receipt Date: 20120223
  Transmission Date: 20120608
  Serious: Yes (Other)
  Sender: FDA-Public Use
  Company Number: US-PFIZER INC-2012041788

PATIENT
  Sex: Female
  Weight: 56.689 kg

DRUGS (5)
  1. CETIRIZINE [Concomitant]
     Indication: HYPERSENSITIVITY
     Dosage: UNK
  2. IBUPROFEN [Concomitant]
     Dosage: UNK
  3. LYRICA [Suspect]
     Indication: FIBROMYALGIA
     Dosage: 150 MG, 1X/DAY
     Route: 048
     Dates: start: 20120201
  4. CYCLOBENZAPRINE [Concomitant]
     Dosage: UNK
  5. TRAMADOL [Concomitant]
     Dosage: UNK

REACTIONS (6)
  - INSOMNIA [None]
  - GAIT DISTURBANCE [None]
  - PAIN IN EXTREMITY [None]
  - STRESS [None]
  - MUSCLE SPASMS [None]
  - PAIN [None]
